FAERS Safety Report 6585271-8 (Version None)
Quarter: 2010Q1

REPORT INFORMATION
  Report Type: 
  Country: None (occurrence: None)
  Receive Date: 20100217
  Receipt Date: 20091224
  Transmission Date: 20100710
  Serious: Yes (Death, Life-Threatening)
  Sender: FDA-Public Use
  Company Number: JP-SANOFI-AVENTIS-F01200900292

PATIENT
  Age: 82 Year
  Sex: Male

DRUGS (4)
  1. CLOPIDOGREL BISULFATE [Suspect]
     Route: 048
     Dates: start: 20061218, end: 20070813
  2. CLOPIDOGREL BISULFATE [Suspect]
     Route: 048
     Dates: start: 20061218, end: 20070813
  3. ASPIRIN [Concomitant]
     Route: 048
     Dates: end: 20070813
  4. TAKEPRON [Concomitant]
     Route: 048
     Dates: start: 20061218, end: 20070813

REACTIONS (5)
  - AORTIC ANEURYSM RUPTURE [None]
  - BLOOD BILIRUBIN INCREASED [None]
  - BLOOD CREATININE INCREASED [None]
  - BLOOD LACTATE DEHYDROGENASE INCREASED [None]
  - BLOOD UREA INCREASED [None]
